FAERS Safety Report 20046023 (Version 1)
Quarter: 2021Q4

REPORT INFORMATION
  Report Type: Spontaneous
  Country: US (occurrence: None)
  Receive Date: 20211108
  Receipt Date: 20211108
  Transmission Date: 20220303
  Serious: No
  Sender: FDA-Public Use
  Company Number: None

PATIENT
  Age: 60 Year
  Sex: Female

DRUGS (1)
  1. GLATIRAMER ACETATE [Suspect]
     Active Substance: GLATIRAMER ACETATE
     Dosage: OTHER FREQUENCY : OTHER;?
     Route: 058
     Dates: start: 20210601

REACTIONS (6)
  - Injection site pain [None]
  - Cardiac discomfort [None]
  - Chest discomfort [None]
  - Throat irritation [None]
  - Dyspnoea [None]
  - Burning sensation [None]

NARRATIVE: CASE EVENT DATE: 20210829
